FAERS Safety Report 5703690-6 (Version None)
Quarter: 2008Q2

REPORT INFORMATION
  Report Type: 
  Country: None (occurrence: None)
  Receive Date: 20080413
  Receipt Date: 20080402
  Transmission Date: 20081010
  Serious: Yes (Hospitalization)
  Sender: FDA-Public Use
  Company Number: PHHY2008MX04717

PATIENT
  Age: 41 Year
  Sex: Female

DRUGS (1)
  1. ZELMAC [Suspect]
     Indication: IRRITABLE BOWEL SYNDROME
     Dosage: 6 MG/DAY
     Route: 048
     Dates: start: 20080101

REACTIONS (3)
  - GASTRITIS [None]
  - HAEMATOCHEZIA [None]
  - ULCER [None]
